FAERS Safety Report 10564629 (Version 1)
Quarter: 2014Q4

REPORT INFORMATION
  Report Type: Spontaneous
  Country: US (occurrence: US)
  Receive Date: 20141104
  Receipt Date: 20141104
  Transmission Date: 20150529
  Serious: Yes (Hospitalization, Other)
  Sender: FDA-Public Use
  Company Number: US-ASTRAZENECA-2014SE82180

PATIENT
  Age: 25842 Day
  Sex: Female
  Weight: 54.4 kg

DRUGS (5)
  1. SPIRIVA [Concomitant]
     Active Substance: TIOTROPIUM BROMIDE MONOHYDRATE
  2. PULMICORT FLEXHALER [Suspect]
     Active Substance: BUDESONIDE
     Indication: EMPHYSEMA
     Dosage: 180 UG, 1 PUFF BID
     Route: 055
     Dates: start: 20140909
  3. XARELTO [Concomitant]
     Active Substance: RIVAROXABAN
  4. OXYGEN. [Concomitant]
     Active Substance: OXYGEN
     Dosage: 24/7
  5. COMBIVENT [Concomitant]
     Active Substance: ALBUTEROL SULFATE\IPRATROPIUM BROMIDE

REACTIONS (12)
  - Pulmonary thrombosis [Recovering/Resolving]
  - Decreased activity [Unknown]
  - Dyspnoea [Unknown]
  - Asthenia [Not Recovered/Not Resolved]
  - Intentional product misuse [Unknown]
  - Lung disorder [Unknown]
  - Pain in extremity [Unknown]
  - Cerebrovascular accident [Recovering/Resolving]
  - Aneurysm [Recovering/Resolving]
  - Circumstance or information capable of leading to medication error [Unknown]
  - Device use error [Unknown]
  - Off label use [Unknown]

NARRATIVE: CASE EVENT DATE: 201409
